FAERS Safety Report 5920079-5 (Version None)
Quarter: 2008Q4

REPORT INFORMATION
  Report Type: 
  Country: None (occurrence: None)
  Receive Date: 20081014
  Receipt Date: 20080930
  Transmission Date: 20090506
  Serious: Yes (Life-Threatening, Hospitalization)
  Sender: FDA-Public Use
  Company Number: 004582

PATIENT
  Age: 2 Year
  Sex: Female

DRUGS (3)
  1. BUSULFEX [Suspect]
     Indication: STEM CELL TRANSPLANT
     Dosage: 0.9 MG/KG, DAILY DOSE, INTRAVENOUS
     Route: 042
     Dates: end: 20080909
  2. MELPHALAN (MELPHALAN) [Concomitant]
  3. METHYLPREDNISOLONE 16MG TAB [Concomitant]

REACTIONS (7)
  - CARDIAC FAILURE [None]
  - CONJUNCTIVITIS [None]
  - ILEUS [None]
  - PULMONARY OEDEMA [None]
  - RENAL FAILURE [None]
  - SEPSIS [None]
  - VENOOCCLUSIVE LIVER DISEASE [None]
